FAERS Safety Report 7726274-7 (Version None)
Quarter: 2011Q3

REPORT INFORMATION
  Report Type: 
  Country: None (occurrence: None)
  Receive Date: 20110902
  Receipt Date: 20110114
  Transmission Date: 20111222
  Serious: No
  Sender: FDA-Public Use
  Company Number: US-BAYER-2011-005483

PATIENT
  Sex: Female

DRUGS (1)
  1. MIRENA [Suspect]

REACTIONS (4)
  - MUSCLE SPASMS [None]
  - NAUSEA [None]
  - VAGINAL HAEMORRHAGE [None]
  - DISCOMFORT [None]
